FAERS Safety Report 15832430 (Version 1)
Quarter: 2019Q1

REPORT INFORMATION
  Report Type: Spontaneous
  Country: MX (occurrence: MX)
  Receive Date: 20190116
  Receipt Date: 20190116
  Transmission Date: 20190417
  Serious: Yes (Other)
  Sender: FDA-Public Use
  Company Number: MX-MYLANLABS-2019M1001125

PATIENT
  Age: 56 Year
  Sex: Female

DRUGS (5)
  1. PREDNISONE. [Suspect]
     Active Substance: PREDNISONE
     Indication: SCLERODERMA
     Route: 065
  2. CALCIPOTRIOL [Suspect]
     Active Substance: CALCIPOTRIENE
     Indication: SCLERODERMA
     Route: 061
  3. METHOTREXATE. [Suspect]
     Active Substance: METHOTREXATE
     Indication: SCLERODERMA
     Route: 065
  4. DEFLAZACORT [Suspect]
     Active Substance: DEFLAZACORT
     Indication: SCLERODERMA
     Route: 065
  5. BETAMETHASONE. [Suspect]
     Active Substance: BETAMETHASONE
     Indication: SCLERODERMA
     Route: 061

REACTIONS (1)
  - Treatment failure [Unknown]
